FAERS Safety Report 22347429 (Version 1)
Quarter: 2023Q2

REPORT INFORMATION
  Report Type: Spontaneous
  Country: US (occurrence: US)
  Receive Date: 20230521
  Receipt Date: 20230521
  Transmission Date: 20230722
  Serious: Yes (Other)
  Sender: FDA-Public Use
  Company Number: US-BRISTOL-MYERS SQUIBB COMPANY-2023-071152

PATIENT
  Age: 70 Year
  Weight: 105.5 kg

DRUGS (3)
  1. APIXABAN [Interacting]
     Active Substance: APIXABAN
     Indication: Cerebrovascular accident prophylaxis
  2. APIXABAN [Interacting]
     Active Substance: APIXABAN
     Indication: Embolism venous
  3. IBRUTINIB [Interacting]
     Active Substance: IBRUTINIB
     Indication: Chronic lymphocytic leukaemia

REACTIONS (2)
  - Haemorrhage [Unknown]
  - Drug interaction [Unknown]
